FAERS Safety Report 8427220-3 (Version None)
Quarter: 2012Q2

REPORT INFORMATION
  Report Type: 
  Country: None (occurrence: None)
  Receive Date: 20120611
  Receipt Date: 20120531
  Transmission Date: 20120825
  Serious: Yes (Hospitalization)
  Sender: FDA-Public Use
  Company Number: US-GLAXOSMITHKLINE-A0875682A

PATIENT
  Age: 51 Year
  Sex: Female
  Weight: 204.5 kg

DRUGS (12)
  1. PREVACID [Concomitant]
  2. CELEBREX [Concomitant]
  3. AMARYL [Concomitant]
  4. ULTRAM [Concomitant]
  5. ENALAPRIL MALEATE [Concomitant]
  6. BENTYL [Concomitant]
  7. RISPERDAL [Concomitant]
  8. AVANDIA [Suspect]
     Indication: TYPE 2 DIABETES MELLITUS
     Dosage: 4MG PER DAY
     Dates: start: 20041014, end: 20060301
  9. AVANDAMET [Suspect]
     Indication: TYPE 2 DIABETES MELLITUS
     Dates: start: 20040102, end: 20040210
  10. LIPITOR [Concomitant]
  11. SYNTHROID [Concomitant]
  12. XANAX [Concomitant]

REACTIONS (3)
  - CHRONIC OBSTRUCTIVE PULMONARY DISEASE [None]
  - PULMONARY OEDEMA [None]
  - CARDIAC FAILURE CONGESTIVE [None]
